FAERS Safety Report 6077968-3 (Version None)
Quarter: 2009Q1

REPORT INFORMATION
  Report Type: 
  Country: None (occurrence: None)
  Receive Date: 20090210
  Receipt Date: 20090129
  Transmission Date: 20090719
  Serious: Yes (Life-Threatening)
  Sender: FDA-Public Use
  Company Number: PAR_02379_2008

PATIENT
  Sex: Male
  Weight: 67 kg

DRUGS (2)
  1. IBUPROFEN [Suspect]
     Indication: MYALGIA
     Dosage: (1 DF QD)
     Dates: start: 20080805, end: 20080807
  2. TETANUS VACCINE (TETANUS VACCINE) [Suspect]
     Indication: DRUG USE FOR UNKNOWN INDICATION
     Dosage: (DF)
     Dates: start: 20080701

REACTIONS (9)
  - HAEMOGLOBIN DECREASED [None]
  - HAEMOLYSIS [None]
  - MYALGIA [None]
  - PLATELET DISORDER [None]
  - PULMONARY HAEMORRHAGE [None]
  - PULMONARY RENAL SYNDROME [None]
  - PYREXIA [None]
  - RENAL FAILURE ACUTE [None]
  - THROMBOCYTOPENIA [None]
